FAERS Safety Report 24736441 (Version 4)
Quarter: 2025Q3

REPORT INFORMATION
  Report Type: Spontaneous
  Country: US (occurrence: US)
  Receive Date: 20241216
  Receipt Date: 20250703
  Transmission Date: 20251021
  Serious: No
  Sender: LEO PHARM
  Company Number: US-LEO Pharma-375962

PATIENT
  Age: 78 Year
  Sex: Male

DRUGS (2)
  1. ADBRY [Suspect]
     Active Substance: TRALOKINUMAB-LDRM
     Indication: Dermatitis atopic
     Dosage: TREATMENT IS ONGOING
     Route: 058
     Dates: start: 202410
  2. ADBRY [Suspect]
     Active Substance: TRALOKINUMAB-LDRM
     Indication: Dermatitis atopic
     Dosage: TREATMENT IS ONGOING
     Route: 058
     Dates: start: 202410

REACTIONS (6)
  - Visual impairment [Unknown]
  - Eye pruritus [Unknown]
  - Dermatitis atopic [Unknown]
  - Lacrimation increased [Unknown]
  - Lens disorder [Unknown]
  - Eyelid margin crusting [Unknown]
